FAERS Safety Report 8911588 (Version 1)
Quarter: 2012Q4

REPORT INFORMATION
  Report Type: 
  Country: US (occurrence: US)
  Receive Date: 20121116
  Receipt Date: 20121116
  Transmission Date: 20130627
  Serious: Yes (Death)
  Sender: FDA-Public Use
  Company Number: US-PFIZER INC-2012286843

PATIENT
  Age: 22 Year
  Sex: Male

DRUGS (4)
  1. ALPRAZOLAM [Suspect]
     Dosage: UNK
  2. OXYCODONE HYDROCHLORIDE [Suspect]
     Dosage: UNK
  3. DIAZEPAM [Suspect]
     Dosage: UNK
  4. CITALOPRAM HBR [Suspect]
     Dosage: UNK

REACTIONS (1)
  - Toxicity to various agents [Fatal]
